FAERS Safety Report 7611964-7 (Version None)
Quarter: 2011Q3

REPORT INFORMATION
  Report Type: 
  Country: None (occurrence: None)
  Receive Date: 20110715
  Receipt Date: 20110705
  Transmission Date: 20111222
  Serious: Yes (Hospitalization, Disabling)
  Sender: FDA-Public Use
  Company Number: US-ABBOTT-11P-163-0836698-00

PATIENT
  Sex: Female
  Weight: 53.118 kg

DRUGS (4)
  1. BONIVA [Concomitant]
     Indication: OSTEOPOROSIS
     Route: 042
  2. OMEPRAZOLE [Concomitant]
     Indication: GASTROOESOPHAGEAL REFLUX DISEASE
  3. HUMIRA [Suspect]
     Indication: RHEUMATOID ARTHRITIS
     Dates: start: 20110201
  4. LISINOPRIL [Concomitant]
     Indication: HYPERTENSION

REACTIONS (9)
  - CEREBRAL HAEMORRHAGE [None]
  - CEREBROVASCULAR ACCIDENT [None]
  - HEMIPLEGIA [None]
  - ARTHRALGIA [None]
  - URINARY INCONTINENCE [None]
  - MEMORY IMPAIRMENT [None]
  - WHEELCHAIR USER [None]
  - CAROTID ARTERY DISSECTION [None]
  - FALL [None]
